FAERS Safety Report 6767485-7 (Version None)
Quarter: 2010Q2

REPORT INFORMATION
  Report Type: 
  Country: None (occurrence: None)
  Receive Date: 20100614
  Receipt Date: 20100601
  Transmission Date: 20101027
  Serious: Yes (Other)
  Sender: FDA-Public Use
  Company Number: PHHY2010ES35319

PATIENT
  Age: 80 Year
  Sex: Male

DRUGS (5)
  1. ACLASTA [Suspect]
     Indication: HYPERPARATHYROIDISM PRIMARY
     Dosage: 5 MG
     Route: 042
     Dates: start: 20090701
  2. CINACALCET [Suspect]
     Indication: HYPERPARATHYROIDISM PRIMARY
     Dosage: UNK
     Dates: start: 20090701
  3. FUROSEMIDE [Concomitant]
     Dosage: 40 MG, UNK
  4. HIDROFEROL [Concomitant]
  5. POTASSIUM [Concomitant]
     Dosage: 600 MG, UNK

REACTIONS (3)
  - EYE DISORDER [None]
  - NERVOUS SYSTEM DISORDER [None]
  - SOMNOLENCE [None]
